FAERS Safety Report 6985766-9 (Version None)
Quarter: 2010Q3

REPORT INFORMATION
  Report Type: 
  Country: None (occurrence: None)
  Receive Date: 20100827
  Receipt Date: 20100324
  Transmission Date: 20110219
  Serious: No
  Sender: FDA-Public Use
  Company Number: 012365

PATIENT
  Age: 36 Year
  Sex: Female

DRUGS (1)
  1. LACOSAMIDE [Suspect]
     Dosage: 50 MG

REACTIONS (4)
  - CONVULSION [None]
  - DIZZINESS [None]
  - NAUSEA [None]
  - VISION BLURRED [None]
